FAERS Safety Report 7506388-7 (Version None)
Quarter: 2011Q2

REPORT INFORMATION
  Report Type: 
  Country: None (occurrence: None)
  Receive Date: 20110526
  Receipt Date: 20110509
  Transmission Date: 20111010
  Serious: No
  Sender: FDA-Public Use
  Company Number: US-B.I. PHARMACEUTICALS,INC./RIDGEFIELD-2011-BP-12651BP

PATIENT
  Age: 81 Year
  Sex: Female

DRUGS (2)
  1. ATROVENT HFA [Suspect]
  2. IPRATROPIUM BROMIDE [Suspect]

REACTIONS (12)
  - FATIGUE [None]
  - NAIL DISCOLOURATION [None]
  - BLOOD CHOLESTEROL ABNORMAL [None]
  - HEADACHE [None]
  - SKIN DISORDER [None]
  - DRY SKIN [None]
  - SKIN CHAPPED [None]
  - DYSGEUSIA [None]
  - TREMOR [None]
  - DISTURBANCE IN ATTENTION [None]
  - DRY MOUTH [None]
  - DIZZINESS [None]
